FAERS Safety Report 23452759 (Version 1)
Quarter: 2024Q1

REPORT INFORMATION
  Report Type: Spontaneous
  Country: TR (occurrence: TR)
  Receive Date: 20240129
  Receipt Date: 20240129
  Transmission Date: 20240410
  Serious: Yes (Hospitalization, Other)
  Sender: FDA-Public Use
  Company Number: TR-002147023-NVSC2024TR018125

PATIENT
  Age: 40 Year
  Sex: Male

DRUGS (3)
  1. TRILEPTAL [Suspect]
     Active Substance: OXCARBAZEPINE
     Indication: Epilepsy
     Dosage: UNK, BID
     Route: 065
  2. TEGRETOL [Suspect]
     Active Substance: CARBAMAZEPINE
     Indication: Epilepsy
     Dosage: 400 MG
     Route: 065
  3. TOPAMAX [Concomitant]
     Active Substance: TOPIRAMATE
     Indication: Product used for unknown indication
     Dosage: UNK
     Route: 065

REACTIONS (10)
  - Seizure [Unknown]
  - Suicidal ideation [Unknown]
  - Nightmare [Unknown]
  - Feeling abnormal [Unknown]
  - Muscle twitching [Unknown]
  - Insomnia [Unknown]
  - Malaise [Unknown]
  - Aphasia [Unknown]
  - Tremor [Unknown]
  - Product supply issue [Unknown]
